FAERS Safety Report 19883161 (Version 1)
Quarter: 2021Q3

REPORT INFORMATION
  Report Type: Spontaneous
  Country: GB (occurrence: GB)
  Receive Date: 20210926
  Receipt Date: 20210926
  Transmission Date: 20211014
  Serious: Yes (Life-Threatening, Hospitalization, Other)
  Sender: FDA-Public Use
  Company Number: GB-DEXPHARM-20211574

PATIENT
  Age: 62 Year
  Sex: Female
  Weight: 56 kg

DRUGS (5)
  1. OMEPRAZOLE. [Suspect]
     Active Substance: OMEPRAZOLE
  2. EZETIMIBE. [Concomitant]
     Active Substance: EZETIMIBE
     Dosage: 1 TABLET ONCE A DAY
     Dates: start: 20210729, end: 20210831
  3. AMLODIPINE [Concomitant]
     Active Substance: AMLODIPINE BESYLATE
     Dosage: 1 TABLET ONCE A DAY
     Dates: start: 20210729, end: 20210831
  4. CODEINE [Concomitant]
     Active Substance: CODEINE
     Dosage: 1 TO 2 TABLETS FOUR TIMES DAILY WHEN REQUIRED.
     Dates: start: 20210729, end: 20210831
  5. PERINDOPRIL ERBUMINE. [Concomitant]
     Active Substance: PERINDOPRIL ERBUMINE
     Dosage: 1 TABLET ONCE A DAY ?NOTES FOR PATIENT: PLEASE BOOK MEDICATION REVIEW
     Dates: start: 20210729, end: 20210831

REACTIONS (2)
  - Hypocalcaemia [Recovering/Resolving]
  - Syncope [Unknown]

NARRATIVE: CASE EVENT DATE: 20210830
